FAERS Safety Report 21172570 (Version 12)
Quarter: 2022Q4

REPORT INFORMATION
  Report Type: Report from Study
  Country: ES (occurrence: None)
  Receive Date: 20220804
  Receipt Date: 20221109
  Transmission Date: 20230112
  Serious: Yes (Hospitalization)
  Sender: FDA-Public Use
  Company Number: ES-Eisai Medical Research-EC-2022-120454

PATIENT
  Age: 59 Year
  Sex: Male
  Weight: 40 kg

DRUGS (5)
  1. LENVATINIB [Suspect]
     Active Substance: LENVATINIB
     Indication: Squamous cell carcinoma of head and neck
     Route: 048
     Dates: start: 20220621, end: 20220726
  2. PEMBROLIZUMAB [Suspect]
     Active Substance: PEMBROLIZUMAB
     Indication: Squamous cell carcinoma of head and neck
     Route: 042
     Dates: start: 20220621, end: 20220712
  3. PEMBROLIZUMAB [Suspect]
     Active Substance: PEMBROLIZUMAB
     Route: 042
     Dates: start: 20220802, end: 20220802
  4. ACETAMINOPHEN [Concomitant]
     Active Substance: ACETAMINOPHEN
     Dates: start: 20220625
  5. DEXKETOPROFEN [Concomitant]
     Active Substance: DEXKETOPROFEN
     Dates: start: 20220628, end: 20220726

REACTIONS (1)
  - Cancer pain [Not Recovered/Not Resolved]

NARRATIVE: CASE EVENT DATE: 20220712
